FAERS Safety Report 8355991-3 (Version None)
Quarter: 2012Q2

REPORT INFORMATION
  Report Type: 
  Country: None (occurrence: None)
  Receive Date: 20120514
  Receipt Date: 20120502
  Transmission Date: 20120825
  Serious: Yes (Other)
  Sender: FDA-Public Use
  Company Number: IT-JNJFOC-20120504335

PATIENT
  Age: 27 Year
  Sex: Male

DRUGS (5)
  1. VITAMIN D [Concomitant]
     Route: 065
  2. REMICADE [Suspect]
     Indication: SPONDYLITIS
     Route: 042
     Dates: start: 20120220, end: 20120426
  3. SULFASALAZINE [Concomitant]
     Route: 065
  4. CELEBREX [Concomitant]
     Route: 065
  5. LASOPRAZOLE [Concomitant]
     Route: 065

REACTIONS (3)
  - RASH [None]
  - NAUSEA [None]
  - LARYNGOSPASM [None]
